FAERS Safety Report 4899361-9 (Version None)
Quarter: 2006Q1

REPORT INFORMATION
  Report Type: 
  Country: None (occurrence: None)
  Receive Date: 20060106
  Receipt Date: 20050912
  Transmission Date: 20060701
  Serious: No
  Sender: FDA-Public Use
  Company Number: 200511422BWH

PATIENT
  Age: 63 Year
  Sex: Male

DRUGS (3)
  1. LEVITRA [Suspect]
     Dosage: ORAL
     Route: 048
     Dates: start: 20040101
  2. SOTALOL HCL [Concomitant]
  3. LISINOPRIL [Concomitant]

REACTIONS (2)
  - CHEST PAIN [None]
  - FLUSHING [None]
